FAERS Safety Report 4300457-0 (Version None)
Quarter: 2004Q1

REPORT INFORMATION
  Report Type: 
  Country: None (occurrence: None)
  Receive Date: 20040217
  Receipt Date: 20040204
  Transmission Date: 20041129
  Serious: Yes (Hospitalization)
  Sender: FDA-Public Use
  Company Number: 2004IC000030

PATIENT
  Age: 76 Year
  Sex: Male

DRUGS (4)
  1. FLUOROURACIL [Suspect]
     Indication: LARGE INTESTINE CARCINOMA
     Dosage: 500 MG; WEEKLY; INTRAVENOUS
     Route: 042
     Dates: start: 20020726, end: 20031216
  2. CALCIUM LEVOFOLINATE [Concomitant]
  3. PIMENOL [Concomitant]
  4. NORVASC [Concomitant]

REACTIONS (1)
  - HYPOTHYROIDISM [None]
